FAERS Safety Report 14091900 (Version 1)
Quarter: 2017Q4

REPORT INFORMATION
  Report Type: Spontaneous
  Country: US (occurrence: None)
  Receive Date: 20171014
  Receipt Date: 20171014
  Transmission Date: 20180321
  Serious: No
  Sender: FDA-Public Use
  Company Number: None

PATIENT
  Age: 65 Year
  Sex: Female

DRUGS (2)
  1. AFINITOR [Suspect]
     Active Substance: EVEROLIMUS
  2. EXEMESTANE. [Concomitant]
     Active Substance: EXEMESTANE

REACTIONS (3)
  - Mouth ulceration [None]
  - Conjunctivitis [None]
  - Eyelid ptosis [None]

NARRATIVE: CASE EVENT DATE: 20171014
